FAERS Safety Report 9178350 (Version 2)
Quarter: 2013Q2

REPORT INFORMATION
  Report Type: Spontaneous
  Country: US (occurrence: US)
  Receive Date: 20130321
  Receipt Date: 20130426
  Transmission Date: 20140414
  Serious: Yes (Hospitalization)
  Sender: FDA-Public Use
  Company Number: US-GILEAD-2013-0072183

PATIENT
  Age: 60 Year
  Sex: Male

DRUGS (2)
  1. LETAIRIS [Suspect]
     Indication: PULMONARY ARTERIAL HYPERTENSION
     Dosage: 10 MG, QD
     Dates: start: 20130221
  2. ADCIRCA [Concomitant]

REACTIONS (3)
  - Vision blurred [Recovered/Resolved]
  - Movement disorder [Recovered/Resolved]
  - Transient ischaemic attack [Unknown]
